FAERS Safety Report 4435397-X (Version None)
Quarter: 2004Q3

REPORT INFORMATION
  Report Type: 
  Country: None (occurrence: None)
  Receive Date: 20040826
  Receipt Date: 20040818
  Transmission Date: 20050211
  Serious: Yes (Hospitalization)
  Sender: FDA-Public Use
  Company Number: 2004CG01242

PATIENT
  Age: 74 Year
  Sex: Male
  Weight: 74 kg

DRUGS (9)
  1. HYTACAND [Suspect]
     Indication: ANGINA PECTORIS
     Dosage: 8 + 12.5 MG
     Dates: start: 20040315, end: 20040420
  2. HYTACAND [Suspect]
     Indication: HYPERTENSION
     Dosage: 8 + 12.5 MG
     Dates: start: 20040315, end: 20040420
  3. TEGRETOL-XR [Suspect]
     Indication: EPILEPSY
     Dosage: 200 MG TID PO
     Route: 048
     Dates: start: 19950115
  4. DEROXAT [Suspect]
     Indication: DEPRESSION
     Dosage: 20 MG DAILY PO
     Route: 048
     Dates: start: 20040410
  5. PLAVIX [Concomitant]
  6. BISOPROLOL FUMARATE [Concomitant]
  7. ACTONEL [Concomitant]
  8. CACIT VITAMINE D3 [Concomitant]
  9. CORVASAL [Concomitant]

REACTIONS (21)
  - AMNESIA [None]
  - ANGINA PECTORIS [None]
  - ASTHENIA [None]
  - BITE [None]
  - CHEST PAIN [None]
  - CONFUSIONAL STATE [None]
  - DEPRESSION [None]
  - DRUG INTERACTION [None]
  - EPILEPSY [None]
  - FEMORAL NECK FRACTURE [None]
  - HYPERGLYCAEMIA [None]
  - HYPERTENSION [None]
  - HYPOCHLORAEMIA [None]
  - HYPOKALAEMIA [None]
  - HYPONATRAEMIA [None]
  - LOSS OF CONSCIOUSNESS [None]
  - MALAISE [None]
  - NAUSEA [None]
  - OSTEOPOROSIS [None]
  - PHLEBITIS [None]
  - RENAL FAILURE [None]
